FAERS Safety Report 24057396 (Version 1)
Quarter: 2024Q3

REPORT INFORMATION
  Report Type: Spontaneous
  Country: FR (occurrence: FR)
  Receive Date: 20240706
  Receipt Date: 20240706
  Transmission Date: 20241017
  Serious: Yes (Hospitalization)
  Sender: ROCHE
  Company Number: None

PATIENT
  Age: 91 Year
  Sex: Female
  Weight: 43.5 kg

DRUGS (1)
  1. TOCILIZUMAB [Suspect]
     Active Substance: TOCILIZUMAB
     Indication: Rheumatoid arthritis
     Route: 058
     Dates: start: 20240131, end: 20240402

REACTIONS (1)
  - Neutrophilic dermatosis [Not Recovered/Not Resolved]

NARRATIVE: CASE EVENT DATE: 20240301
